FAERS Safety Report 9157991 (Version 2)
Quarter: 2015Q3

REPORT INFORMATION
  Report Type: Report from Study
  Country: FR (occurrence: FR)
  Receive Date: 20130312
  Receipt Date: 20150728
  Transmission Date: 20151125
  Serious: Yes (Hospitalization, Other)
  Sender: FDA-Public Use
  Company Number: FR-ROCHE-1198412

PATIENT
  Age: 81 Year
  Sex: Female
  Weight: 68 kg

DRUGS (19)
  1. TOCILIZUMAB [Suspect]
     Active Substance: TOCILIZUMAB
     Indication: RHEUMATOID ARTHRITIS
     Route: 041
     Dates: start: 20110113
  2. TOCILIZUMAB [Suspect]
     Active Substance: TOCILIZUMAB
     Route: 041
     Dates: start: 20110507
  3. AMLOR [Concomitant]
     Active Substance: AMLODIPINE BESYLATE
     Route: 065
  4. TOCILIZUMAB [Suspect]
     Active Substance: TOCILIZUMAB
     Route: 041
     Dates: start: 20110530
  5. DEROXAT [Concomitant]
     Active Substance: PAROXETINE HYDROCHLORIDE
     Dosage: ONE DOSAGE FORM
     Route: 065
  6. DIFFU K [Concomitant]
     Active Substance: POTASSIUM CHLORIDE
     Dosage: ONE DOSAGE FORM
     Route: 065
  7. FUMAFER [Concomitant]
     Active Substance: FERROUS FUMARATE
     Dosage: TWO DOSAGE FORM
     Route: 065
  8. TOCILIZUMAB [Suspect]
     Active Substance: TOCILIZUMAB
     Route: 041
     Dates: start: 20110404
  9. LEVEMIR [Concomitant]
     Active Substance: INSULIN DETEMIR
     Dosage: SIX IU
     Route: 065
  10. JANUVIA [Concomitant]
     Active Substance: SITAGLIPTIN PHOSPHATE
     Route: 065
  11. LEVOTHYROX [Concomitant]
     Active Substance: LEVOTHYROXINE
     Route: 065
  12. CARDENSIEL [Concomitant]
     Active Substance: BISOPROLOL FUMARATE
     Route: 065
     Dates: start: 20130909
  13. SERESTA [Concomitant]
     Active Substance: OXAZEPAM
     Route: 065
  14. LASILIX [Concomitant]
     Active Substance: FUROSEMIDE
     Route: 065
  15. INEXIUM [Concomitant]
     Active Substance: ESOMEPRAZOLE
     Route: 065
  16. PREVISCAN (FRANCE) [Concomitant]
     Active Substance: FLUINDIONE
     Route: 065
  17. TOCILIZUMAB [Suspect]
     Active Substance: TOCILIZUMAB
     Route: 041
     Dates: start: 20110502
  18. CORDARONE [Concomitant]
     Active Substance: AMIODARONE HYDROCHLORIDE
     Route: 065
  19. STABLON [Concomitant]
     Active Substance: TIANEPTINE
     Route: 065

REACTIONS (15)
  - Chondrocalcinosis [Recovered/Resolved]
  - Fungal skin infection [Recovered/Resolved]
  - Cholangitis [Recovered/Resolved]
  - Pneumonia staphylococcal [Recovered/Resolved]
  - Cerebral infarction [Recovered/Resolved]
  - Cardiac failure [Recovered/Resolved]
  - Cardiopulmonary failure [Recovered/Resolved]
  - Drug ineffective [Unknown]
  - Anaemia [Unknown]
  - Arthritis bacterial [Recovered/Resolved]
  - Decubitus ulcer [Recovered/Resolved]
  - Incorrect dose administered [Unknown]
  - Malnutrition [Recovered/Resolved]
  - Haematology test abnormal [Recovered/Resolved]
  - Dermabrasion [Recovered/Resolved]

NARRATIVE: CASE EVENT DATE: 201102
